FAERS Safety Report 4727222-4 (Version None)
Quarter: 2005Q3

REPORT INFORMATION
  Report Type: 
  Country: None (occurrence: None)
  Receive Date: 20050726
  Receipt Date: 20050726
  Transmission Date: 20060218
  Serious: Yes (Other)
  Sender: FDA-Public Use
  Company Number: None

PATIENT
  Age: 52 Year
  Sex: Male
  Weight: 81.6 kg

DRUGS (3)
  1. SIMVASTATIN [Suspect]
  2. TRAMADOL HCL [Concomitant]
  3. OMEPRAZOLE [Concomitant]

REACTIONS (1)
  - MYALGIA [None]
